FAERS Safety Report 8359877-X (Version None)
Quarter: 2012Q2

REPORT INFORMATION
  Report Type: 
  Country: None (occurrence: None)
  Receive Date: 20120514
  Receipt Date: 20120514
  Transmission Date: 20120825
  Serious: No
  Sender: FDA-Public Use
  Company Number: None

PATIENT
  Age: 64 Year
  Sex: Female
  Weight: 68.0396 kg

DRUGS (2)
  1. PRAVASTATIN [Suspect]
     Indication: BLOOD CHOLESTEROL
     Dosage: 40 MG 1 A DAY
     Dates: start: 20120509
  2. PRAVASTATIN [Suspect]
     Indication: BLOOD CHOLESTEROL
     Dosage: 40 MG 1 A DAY
     Dates: start: 20120502

REACTIONS (7)
  - HYPERSENSITIVITY [None]
  - STOMATITIS [None]
  - PAIN [None]
  - PAIN IN EXTREMITY [None]
  - EYE SWELLING [None]
  - GLOSSODYNIA [None]
  - INFLUENZA LIKE ILLNESS [None]
